FAERS Safety Report 12000848 (Version 1)
Quarter: 2016Q1

REPORT INFORMATION
  Report Type: Report from Study
  Country: CN (occurrence: CN)
  Receive Date: 20160204
  Receipt Date: 20160204
  Transmission Date: 20160526
  Serious: Yes (Death, Hospitalization, Other)
  Sender: FDA-Public Use
  Company Number: CN-ASTELLAS-2014US021652

PATIENT
  Age: 77 Year
  Sex: Male

DRUGS (1)
  1. ERLOTINIB [Suspect]
     Active Substance: ERLOTINIB
     Indication: NON-SMALL CELL LUNG CANCER
     Route: 048
     Dates: start: 20130220

REACTIONS (8)
  - Nasopharyngitis [Recovering/Resolving]
  - Malignant neoplasm progression [Unknown]
  - Myocardial ischaemia [Fatal]
  - Cough [Unknown]
  - Cardiac failure [Fatal]
  - Pyrexia [Recovering/Resolving]
  - Neoplasm [Unknown]
  - Pneumonia [Unknown]

NARRATIVE: CASE EVENT DATE: 20150720
